FAERS Safety Report 9985539 (Version 3)
Quarter: 2014Q2

REPORT INFORMATION
  Report Type: Spontaneous
  Country: IT (occurrence: IT)
  Receive Date: 20140307
  Receipt Date: 20140509
  Transmission Date: 20141212
  Serious: Yes (Hospitalization)
  Sender: FDA-Public Use
  Company Number: IT-AMGEN-ITASP2014015458

PATIENT
  Age: 60 Year
  Sex: Female
  Weight: 75 kg

DRUGS (5)
  1. XGEVA [Suspect]
     Indication: METASTASES TO BONE
     Dosage: 120 MG, CYCLICAL
     Route: 058
     Dates: start: 20131002
  2. MEGEXIA [Concomitant]
     Indication: DECREASED APPETITE
     Dosage: 160 MG, UNK
     Route: 048
     Dates: start: 20131002, end: 20140124
  3. DUROGESIC [Concomitant]
     Dosage: 25 MCG, PATCH
     Route: 062
     Dates: start: 20131127, end: 20140124
  4. ACTIQ [Concomitant]
     Indication: METASTATIC PAIN
     Dosage: 600 MUG, UNK
     Route: 062
     Dates: start: 20131002, end: 20140124
  5. LISINOPRIL ACTAVIS                 /00894001/ [Concomitant]
     Indication: HYPERTENSION
     Dosage: 5 MG, UNK
     Route: 048
     Dates: start: 20131127, end: 20140124

REACTIONS (1)
  - Acute myocardial infarction [Recovered/Resolved]
